FAERS Safety Report 6061293-0 (Version None)
Quarter: 2009Q1

REPORT INFORMATION
  Report Type: 
  Country: None (occurrence: None)
  Receive Date: 20090202
  Receipt Date: 20090126
  Transmission Date: 20090719
  Serious: Yes (Hospitalization)
  Sender: FDA-Public Use
  Company Number: US-MERCK-0901USA00618

PATIENT
  Sex: Male

DRUGS (3)
  1. ZOCOR [Suspect]
     Route: 048
  2. ZETIA [Suspect]
     Route: 048
  3. AMIODARONE [Concomitant]
     Route: 065

REACTIONS (3)
  - BLOOD CREATINE PHOSPHOKINASE INCREASED [None]
  - FALL [None]
  - MUSCLE DISORDER [None]
